FAERS Safety Report 15275089 (Version 1)
Quarter: 2018Q3

REPORT INFORMATION
  Report Type: Spontaneous
  Country: US (occurrence: US)
  Receive Date: 20180727
  Receipt Date: 20180727
  Transmission Date: 20181010
  Serious: No
  Sender: FDA-Public Use
  Company Number: None

PATIENT
  Sex: Female

DRUGS (1)
  1. HUMIRA [Suspect]
     Active Substance: ADALIMUMAB
     Indication: UVEITIS
     Route: 058
     Dates: start: 201806

REACTIONS (11)
  - Burning sensation [None]
  - Urinary incontinence [None]
  - Contusion [None]
  - Muscular weakness [None]
  - Dizziness [None]
  - Musculoskeletal disorder [None]
  - Rash pruritic [None]
  - Paraesthesia [None]
  - Nausea [None]
  - Peripheral swelling [None]
  - Muscle spasms [None]
